FAERS Safety Report 5257597-1 (Version None)
Quarter: 2007Q1

REPORT INFORMATION
  Report Type: 
  Country: None (occurrence: None)
  Receive Date: 20070307
  Receipt Date: 20061227
  Transmission Date: 20070707
  Serious: No
  Sender: FDA-Public Use
  Company Number: US-GLAXOSMITHKLINE-A0632634A

PATIENT
  Age: 50 Year
  Sex: Female

DRUGS (3)
  1. REQUIP [Suspect]
     Indication: RESTLESS LEGS SYNDROME
     Dosage: .25 PER DAY
     Route: 048
     Dates: start: 20061220, end: 20061223
  2. PREMARIN [Concomitant]
  3. TOPROL-XL [Concomitant]

REACTIONS (3)
  - DYSKINESIA [None]
  - MUSCLE TWITCHING [None]
  - PHARYNGOLARYNGEAL PAIN [None]
